FAERS Safety Report 5446541-X (Version None)
Quarter: 2007Q3

REPORT INFORMATION
  Report Type: 
  Country: None (occurrence: None)
  Receive Date: 20070907
  Receipt Date: 20070831
  Transmission Date: 20080115
  Serious: Yes (Other)
  Sender: FDA-Public Use
  Company Number: US-GENENTECH-246976

PATIENT
  Sex: Female

DRUGS (6)
  1. LUCENTIS [Suspect]
     Indication: MACULAR DEGENERATION
     Dosage: UNK, UNK
     Dates: start: 20070513
  2. CELESTONE TAB [Concomitant]
     Indication: OSTEOARTHRITIS
     Dates: start: 20070830
  3. LIDOCAINE [Concomitant]
     Indication: OSTEOARTHRITIS
     Dates: start: 20070830
  4. INDOMETHACIN [Concomitant]
     Indication: DRUG USE FOR UNKNOWN INDICATION
  5. OXYBUTYNIN CHLORIDE [Concomitant]
     Indication: DRUG USE FOR UNKNOWN INDICATION
  6. MEDICATION (UNK INGREDIENT) [Concomitant]
     Indication: BLADDER DISORDER

REACTIONS (2)
  - HYPERGLYCAEMIA [None]
  - HYPERHIDROSIS [None]
